FAERS Safety Report 6048537-6 (Version None)
Quarter: 2009Q1

REPORT INFORMATION
  Report Type: 
  Country: None (occurrence: None)
  Receive Date: 20090123
  Receipt Date: 20090112
  Transmission Date: 20090719
  Serious: Yes (Hospitalization, Other)
  Sender: FDA-Public Use
  Company Number: PL-PFIZER INC-2008158593

PATIENT

DRUGS (8)
  1. SUNITINIB MALATE [Suspect]
     Indication: BREAST CANCER
     Dosage: 37.5 MG, 1X/DAY
     Route: 048
     Dates: start: 20080528, end: 20081218
  2. DOCETAXEL [Suspect]
     Indication: BREAST CANCER
     Dosage: 114 MG, EVERY 3 WEEKS
     Route: 042
     Dates: start: 20080506, end: 20081021
  3. DURAGESIC-100 [Concomitant]
     Indication: BONE PAIN
     Dosage: 25 UG, 72 HRS
     Dates: start: 20080429, end: 20080527
  4. THIOCODIN [Concomitant]
     Indication: COUGH
     Dosage: UNK
     Dates: start: 20080429
  5. KETONAL [Concomitant]
     Indication: BONE PAIN
     Dates: start: 20080608
  6. DEXAVEN [Concomitant]
     Indication: MENINGITIS
     Dosage: 4 MG, 1X/DAY
     Dates: start: 20081230
  7. MANNITOL [Concomitant]
     Indication: MENINGITIS
     Dosage: 250 MG, 3X/DAY
     Dates: start: 20081230
  8. EUTHYROX [Concomitant]
     Indication: HYPOTHYROIDISM
     Dosage: 50 UG, 1X/DAY
     Dates: start: 20081222

REACTIONS (2)
  - BLOOD THYROID STIMULATING HORMONE INCREASED [None]
  - METASTASES TO MENINGES [None]
